FAERS Safety Report 18302908 (Version 1)
Quarter: 2020Q3

REPORT INFORMATION
  Report Type: Report from Study
  Country: AT (occurrence: AT)
  Receive Date: 20200923
  Receipt Date: 20200923
  Transmission Date: 20201103
  Serious: Yes (Hospitalization)
  Sender: FDA-Public Use
  Company Number: AT-GLAXOSMITHKLINE-AT2020188379

PATIENT
  Age: 66 Year
  Sex: Female

DRUGS (1)
  1. BELIMUMAB [Suspect]
     Active Substance: BELIMUMAB
     Indication: LUPUS NEPHRITIS
     Dosage: 800 MG P.INF. EVERY 4 WEEKS
     Route: 065
     Dates: start: 201502

REACTIONS (1)
  - Radius fracture [Recovered/Resolved]

NARRATIVE: CASE EVENT DATE: 202003
